FAERS Safety Report 7761812-X (Version None)
Quarter: 2011Q3

REPORT INFORMATION
  Report Type: 
  Country: None (occurrence: None)
  Receive Date: 20110920
  Receipt Date: 20110912
  Transmission Date: 20111222
  Serious: Yes (Hospitalization)
  Sender: FDA-Public Use
  Company Number: IE-B.I. PHARMACEUTICALS,INC./RIDGEFIELD-2011-UK-00927UK

PATIENT
  Age: 38 Year
  Sex: Female

DRUGS (1)
  1. DABIGATRAN (00015/0485/001-0001) [Suspect]
     Indication: ANTIPHOSPHOLIPID SYNDROME
     Dosage: 220 MG

REACTIONS (1)
  - CEREBRAL INFARCTION [None]
